FAERS Safety Report 6961596-9 (Version None)
Quarter: 2010Q3

REPORT INFORMATION
  Report Type: 
  Country: None (occurrence: None)
  Receive Date: 20100901
  Receipt Date: 20100819
  Transmission Date: 20110219
  Serious: Yes (Other)
  Sender: FDA-Public Use
  Company Number: GB-MYLANLABS-2010S1015239

PATIENT
  Age: 56 Year
  Sex: Male

DRUGS (7)
  1. METFORMIN [Suspect]
     Indication: DIABETES MELLITUS
  2. FENOFIBRATE [Suspect]
     Indication: PRODUCT USED FOR UNKNOWN INDICATION
  3. GLUCOPHAGE [Suspect]
     Indication: DIABETES MELLITUS
  4. LIPITOR [Suspect]
     Indication: PRODUCT USED FOR UNKNOWN INDICATION
  5. NATEGLINIDE [Suspect]
     Indication: PRODUCT USED FOR UNKNOWN INDICATION
  6. PIOGLITAZONE [Suspect]
     Indication: PRODUCT USED FOR UNKNOWN INDICATION
  7. PROTON PUMP INHIBITORS [Suspect]
     Indication: PRODUCT USED FOR UNKNOWN INDICATION

REACTIONS (1)
  - HEPATITIS [None]
